FAERS Safety Report 6347351-1 (Version None)
Quarter: 2009Q3

REPORT INFORMATION
  Report Type: 
  Country: None (occurrence: None)
  Receive Date: 20090910
  Receipt Date: 20090831
  Transmission Date: 20100115
  Serious: Yes (Other)
  Sender: FDA-Public Use
  Company Number: CA-ABBOTT-09P-028-0587928-00

PATIENT
  Sex: Male
  Weight: 99.88 kg

DRUGS (16)
  1. HUMIRA [Suspect]
     Indication: CROHN'S DISEASE
     Route: 058
     Dates: start: 20090501
  2. HUMIRA [Suspect]
     Dosage: 20MG DAILY TO BE WEANED OUT
  3. PLAVIX [Concomitant]
     Indication: DRUG USE FOR UNKNOWN INDICATION
  4. ASPIRIN [Concomitant]
     Indication: DRUG USE FOR UNKNOWN INDICATION
  5. NEXIUM [Concomitant]
     Indication: DRUG USE FOR UNKNOWN INDICATION
  6. METOPROLOL [Concomitant]
     Indication: DRUG USE FOR UNKNOWN INDICATION
  7. COLCHICINE [Concomitant]
     Indication: DRUG USE FOR UNKNOWN INDICATION
     Dosage: 0.6 MG 2 CO QD
  8. FOSAMAX [Concomitant]
     Indication: DRUG USE FOR UNKNOWN INDICATION
  9. CALCIUM [Concomitant]
     Indication: DRUG USE FOR UNKNOWN INDICATION
  10. POTASSIUM CITRATE [Concomitant]
     Indication: DRUG USE FOR UNKNOWN INDICATION
  11. VITAMIN B-12 [Concomitant]
     Indication: DRUG USE FOR UNKNOWN INDICATION
  12. PROTYLOL [Concomitant]
     Indication: DRUG USE FOR UNKNOWN INDICATION
  13. NITROGLYCERIN [Concomitant]
     Indication: DRUG USE FOR UNKNOWN INDICATION
  14. EMTEC-30 [Concomitant]
     Indication: DRUG USE FOR UNKNOWN INDICATION
  15. TALWIN [Concomitant]
     Indication: DRUG USE FOR UNKNOWN INDICATION
  16. PREDNISONE TAB [Concomitant]
     Indication: DRUG USE FOR UNKNOWN INDICATION

REACTIONS (8)
  - ABDOMINAL PAIN UPPER [None]
  - COCCYDYNIA [None]
  - FISTULA [None]
  - FUNGAL INFECTION [None]
  - NODULE [None]
  - OROPHARYNGEAL PAIN [None]
  - PAINFUL DEFAECATION [None]
  - PILONIDAL CYST [None]
